FAERS Safety Report 13700526 (Version 2)
Quarter: 2017Q3

REPORT INFORMATION
  Report Type: Spontaneous
  Country: GB (occurrence: GB)
  Receive Date: 20170629
  Receipt Date: 20170707
  Transmission Date: 20171127
  Serious: Yes (Other)
  Sender: FDA-Public Use
  Company Number: GB-TEVA-779454ACC

PATIENT
  Age: 27 Year
  Sex: Male

DRUGS (6)
  1. PREDNESOL [Concomitant]
     Indication: ACUTE GRAFT VERSUS HOST DISEASE
     Route: 065
     Dates: end: 201705
  2. MYCOPHENOLATE MOFETIL. [Concomitant]
     Active Substance: MYCOPHENOLATE MOFETIL
     Indication: ACUTE GRAFT VERSUS HOST DISEASE
     Dosage: 2 GRAM DAILY;
  3. RITUXIMAB. [Suspect]
     Active Substance: RITUXIMAB
     Indication: ACUTE MYELOID LEUKAEMIA
     Dosage: 375 MG/M2 (4 DOSES SEP 2016 NOW 3 PER 12 WEEKLY)
     Route: 065
  4. CICLOSPORIN [Concomitant]
     Active Substance: CYCLOSPORINE
     Indication: ACUTE GRAFT VERSUS HOST DISEASE
     Dosage: 160 MILLIGRAM DAILY;
     Route: 065
  5. ETANERCEPT [Concomitant]
     Active Substance: ETANERCEPT
     Indication: ACUTE GRAFT VERSUS HOST DISEASE
     Route: 065
  6. IMATINIB [Suspect]
     Active Substance: IMATINIB
     Indication: ACUTE MYELOID LEUKAEMIA
     Dosage: 200 MILLIGRAM DAILY;
     Route: 065
     Dates: end: 201705

REACTIONS (9)
  - Blood creatinine decreased [Unknown]
  - Blood urea increased [Unknown]
  - Concomitant disease progression [Unknown]
  - Haematocrit decreased [Unknown]
  - Alanine aminotransferase increased [Unknown]
  - Haemoglobin decreased [Unknown]
  - Chronic graft versus host disease [Unknown]
  - Gait disturbance [Unknown]
  - Blood alkaline phosphatase increased [Unknown]
